FAERS Safety Report 20665820 (Version 1)
Quarter: 2022Q2

REPORT INFORMATION
  Report Type: Spontaneous
  Country: CA (occurrence: CA)
  Receive Date: 20220402
  Receipt Date: 20220402
  Transmission Date: 20220721
  Serious: Yes (Life-Threatening, Hospitalization)
  Sender: FDA-Public Use
  Company Number: None

PATIENT
  Age: 3 Year
  Sex: Male
  Weight: 18 kg

DRUGS (12)
  1. METHOTREXATE [Suspect]
     Active Substance: METHOTREXATE
     Indication: Acute lymphocytic leukaemia
     Dosage: FREQUENCY: ONCE
     Route: 030
  2. AMITRIPTYLINE HYDROCHLORIDE W/PERPH [Concomitant]
  3. CHOLECALCIFEROL [Concomitant]
     Active Substance: CHOLECALCIFEROL
  4. FLUCONAZOLE [Concomitant]
     Active Substance: FLUCONAZOLE
  5. HYDROCORTISONE [Concomitant]
     Active Substance: HYDROCORTISONE
  6. LEUCOVORIN [Concomitant]
     Active Substance: LEUCOVORIN
  7. MERCAPTOPURINE [Concomitant]
     Active Substance: MERCAPTOPURINE
  8. ONDANSETRON [Concomitant]
     Active Substance: ONDANSETRON
  9. PIPERACILLIN AND TAZOBACTAM [Concomitant]
     Active Substance: PIPERACILLIN SODIUM\TAZOBACTAM SODIUM
  10. POLYETHYLENE GLYCOL [Concomitant]
     Active Substance: POLYETHYLENE GLYCOL
  11. POTASSIUM [Concomitant]
     Active Substance: POTASSIUM
  12. VINCRISTINE SULFATE [Concomitant]
     Active Substance: VINCRISTINE SULFATE

REACTIONS (1)
  - Oral disorder [Recovered/Resolved]
